FAERS Safety Report 14823043 (Version 1)
Quarter: 2018Q2

REPORT INFORMATION
  Report Type: Spontaneous
  Country: CA (occurrence: CA)
  Receive Date: 20180427
  Receipt Date: 20180427
  Transmission Date: 20180711
  Serious: Yes (Other)
  Sender: FDA-Public Use
  Company Number: CA-GE HEALTHCARE LIFE SCIENCES-2018CSU001544

PATIENT

DRUGS (2)
  1. OMNISCAN [Suspect]
     Active Substance: GADODIAMIDE
     Dosage: 14 ML, SINGLE
     Route: 065
     Dates: start: 201602, end: 201602
  2. OMNISCAN [Suspect]
     Active Substance: GADODIAMIDE
     Indication: PRODUCT USED FOR UNKNOWN INDICATION
     Dosage: 14 ML, SINGLE
     Route: 065
     Dates: start: 201501, end: 201501

REACTIONS (1)
  - Contrast media deposition [Unknown]
